FAERS Safety Report 6084488-9 (Version None)
Quarter: 2009Q1

REPORT INFORMATION
  Report Type: 
  Country: None (occurrence: None)
  Receive Date: 20090219
  Receipt Date: 20090209
  Transmission Date: 20090719
  Serious: Yes (Other)
  Sender: FDA-Public Use
  Company Number: ES-SANOFI-SYNTHELABO-A01200815437

PATIENT
  Age: 85 Year
  Sex: Female

DRUGS (9)
  1. ZYLORIC [Suspect]
     Indication: BLOOD TEST ABNORMAL
     Route: 048
     Dates: start: 19971201
  2. SEKISAN [Suspect]
     Indication: COUGH
     Dosage: 45 ML CYCLIQUE
     Route: 048
     Dates: start: 19980216, end: 19980201
  3. FERO-GRADUMET [Suspect]
     Indication: IRON DEFICIENCY ANAEMIA
     Dosage: UNK
     Route: 048
     Dates: start: 19971201
  4. ADIRO [Suspect]
     Indication: DRUG USE FOR UNKNOWN INDICATION
     Route: 048
     Dates: start: 19971201
  5. SEGURIL [Suspect]
     Indication: DRUG USE FOR UNKNOWN INDICATION
     Route: 048
     Dates: start: 19971201
  6. STILNOX [Suspect]
     Indication: DRUG USE FOR UNKNOWN INDICATION
     Dosage: UNK
     Route: 048
     Dates: start: 19971201
  7. FLUIMUCIL [Suspect]
     Indication: COUGH
     Route: 048
     Dates: start: 19980216, end: 19980201
  8. ZANTAC [Suspect]
     Indication: DRUG USE FOR UNKNOWN INDICATION
     Route: 048
     Dates: start: 19971201
  9. NITRADISC [Suspect]
     Indication: CARDIOMYOPATHY
     Route: 023
     Dates: start: 19971201

REACTIONS (1)
  - STEVENS-JOHNSON SYNDROME [None]
